FAERS Safety Report 6616859-3 (Version None)
Quarter: 2010Q1

REPORT INFORMATION
  Report Type: 
  Country: None (occurrence: None)
  Receive Date: 20100301
  Receipt Date: 20100212
  Transmission Date: 20100710
  Serious: Yes (Death)
  Sender: FDA-Public Use
  Company Number: 10000012068

PATIENT
  Age: 54 Year
  Sex: Female

DRUGS (5)
  1. EXCITALOPRAM (ESCITALOPRAM OXALATE) [Suspect]
  2. METOPROLOL TARTRATE [Suspect]
  3. CARISOPRODOL [Suspect]
  4. CLOPIDOGREL [Suspect]
  5. DIAZEPAM [Suspect]

REACTIONS (3)
  - CARDIAC ARREST [None]
  - COMPLETED SUICIDE [None]
  - RESPIRATORY ARREST [None]
